FAERS Safety Report 12768856 (Version 1)
Quarter: 2016Q3

REPORT INFORMATION
  Report Type: Spontaneous
  Country: US (occurrence: US)
  Receive Date: 20160921
  Receipt Date: 20160921
  Transmission Date: 20161109
  Serious: No
  Sender: FDA-Public Use
  Company Number: US-JAZZ-2016-US-010336

PATIENT
  Sex: Female

DRUGS (36)
  1. NALTREXONE HCL [Concomitant]
     Active Substance: NALTREXONE HYDROCHLORIDE
  2. PLAQUENIL [Concomitant]
     Active Substance: HYDROXYCHLOROQUINE SULFATE
  3. HYDROCORTISONE. [Concomitant]
     Active Substance: HYDROCORTISONE
  4. ADDERALL [Concomitant]
     Active Substance: AMPHETAMINE ASPARTATE\AMPHETAMINE SULFATE\DEXTROAMPHETAMINE SACCHARATE\DEXTROAMPHETAMINE SULFATE
  5. VALTREX [Concomitant]
     Active Substance: VALACYCLOVIR HYDROCHLORIDE
  6. MEDROL [Concomitant]
     Active Substance: METHYLPREDNISOLONE
  7. TRI-LUMA [Concomitant]
     Active Substance: FLUOCINOLONE ACETONIDE\HYDROQUINONE\TRETINOIN
  8. IMMUNOGLOBULIN [Concomitant]
     Active Substance: HUMAN IMMUNOGLOBULIN G
  9. TOPAMAX [Concomitant]
     Active Substance: TOPIRAMATE
  10. XYREM [Suspect]
     Active Substance: SODIUM OXYBATE
     Indication: NARCOLEPSY
     Dosage: 3 G, BID
     Route: 048
     Dates: start: 201010, end: 201011
  11. GABAPENTIN. [Concomitant]
     Active Substance: GABAPENTIN
  12. NADOLOL. [Concomitant]
     Active Substance: NADOLOL
  13. FLONASE [Concomitant]
     Active Substance: FLUTICASONE PROPIONATE
  14. SPIRONOLACTONE. [Concomitant]
     Active Substance: SPIRONOLACTONE
  15. OXYCODONE AND ACETAMINOPHEN [Concomitant]
     Active Substance: ACETAMINOPHEN\OXYCODONE HYDROCHLORIDE
  16. CLONAZEPAM. [Concomitant]
     Active Substance: CLONAZEPAM
  17. METROGEL VAGINAL [Concomitant]
     Active Substance: METRONIDAZOLE
  18. OMEGA 3 [Concomitant]
     Active Substance: OMEGA-3 FATTY ACIDS
  19. DICYCLOMINE [Concomitant]
     Active Substance: DICYCLOMINE HYDROCHLORIDE
  20. PROGESTERONE. [Concomitant]
     Active Substance: PROGESTERONE
  21. KEFLEX [Concomitant]
     Active Substance: CEPHALEXIN
  22. HYDROCODONE/ACETAMINOPHEN [Concomitant]
     Active Substance: ACETAMINOPHEN\HYDROCODONE
  23. XYREM [Suspect]
     Active Substance: SODIUM OXYBATE
     Dosage: 4.5 G, BID
     Route: 048
     Dates: start: 201012
  24. VITAMIN D [Concomitant]
     Active Substance: CHOLECALCIFEROL
  25. CELEBREX [Concomitant]
     Active Substance: CELECOXIB
  26. NALTREXONE [Concomitant]
     Active Substance: NALTREXONE
  27. METHYLPREDNISOLONE. [Concomitant]
     Active Substance: METHYLPREDNISOLONE
  28. PREDNISONE. [Concomitant]
     Active Substance: PREDNISONE
  29. XYREM [Suspect]
     Active Substance: SODIUM OXYBATE
     Dosage: 3.75 G, BID
     Route: 048
     Dates: start: 201011, end: 201012
  30. ULTRAM [Concomitant]
     Active Substance: TRAMADOL HYDROCHLORIDE
  31. PROZAC [Concomitant]
     Active Substance: FLUOXETINE HYDROCHLORIDE
  32. ARMOUR THYROID [Concomitant]
     Active Substance: THYROID, PORCINE
  33. WELLBUTRIN [Concomitant]
     Active Substance: BUPROPION HYDROCHLORIDE
  34. MYRBETRIQ [Concomitant]
     Active Substance: MIRABEGRON
  35. NASACORT [Concomitant]
     Active Substance: TRIAMCINOLONE ACETONIDE
  36. ZOMIG [Concomitant]
     Active Substance: ZOLMITRIPTAN

REACTIONS (2)
  - Hypertension [Recovered/Resolved]
  - Anxiety [Recovered/Resolved]
